FAERS Safety Report 4871795-8 (Version None)
Quarter: 2006Q1

REPORT INFORMATION
  Report Type: 
  Country: None (occurrence: None)
  Receive Date: 20060104
  Receipt Date: 20050407
  Transmission Date: 20060701
  Serious: Yes (Life-Threatening)
  Sender: FDA-Public Use
  Company Number: FR-GLAXOSMITHKLINE-B0378136A

PATIENT
  Age: 46 Year
  Sex: Female
  Weight: 52 kg

DRUGS (8)
  1. NIMBEX [Suspect]
     Dosage: 10MG PER DAY
     Route: 042
     Dates: start: 20050324, end: 20050324
  2. AUGMENTIN '125' [Suspect]
     Indication: ANTIBIOTIC PROPHYLAXIS
     Dosage: 2G PER DAY
     Route: 042
     Dates: start: 20050324, end: 20050324
  3. CELOCURINE [Suspect]
     Dosage: 60MG PER DAY
     Route: 042
     Dates: start: 20050324, end: 20050324
  4. PERFALGAN [Suspect]
     Dosage: 1G PER DAY
     Route: 042
     Dates: start: 20050324, end: 20050324
  5. PROPOFOL [Suspect]
     Dosage: 200MG PER DAY
     Route: 042
     Dates: start: 20050324, end: 20050324
  6. GELOFUSINE [Suspect]
     Dosage: 200ML PER DAY
     Route: 042
     Dates: start: 20050324, end: 20050324
  7. SUFENTA [Suspect]
     Dosage: 35MCG PER DAY
     Route: 042
     Dates: start: 20050324, end: 20050324
  8. BETADINE [Concomitant]
     Route: 061
     Dates: start: 20050324, end: 20050324

REACTIONS (5)
  - ANAPHYLACTOID REACTION [None]
  - ANGIONEUROTIC OEDEMA [None]
  - HYPERSENSITIVITY [None]
  - HYPOTENSION [None]
  - TACHYCARDIA [None]
